FAERS Safety Report 5966253-3 (Version None)
Quarter: 2008Q4

REPORT INFORMATION
  Report Type: 
  Country: None (occurrence: None)
  Receive Date: 20081119
  Receipt Date: 20080903
  Transmission Date: 20090506
  Serious: No
  Sender: FDA-Public Use
  Company Number: WAES 0809USA00472

PATIENT

DRUGS (3)
  1. JANUVIA [Suspect]
     Indication: BLOOD GLUCOSE
  2. [THERAPY UNSPECIFIED] [Concomitant]
  3. METFORMIN HCL [Concomitant]

REACTIONS (1)
  - WEIGHT INCREASED [None]
